FAERS Safety Report 6646086-5 (Version None)
Quarter: 2010Q1

REPORT INFORMATION
  Report Type: 
  Country: None (occurrence: None)
  Receive Date: 20100323
  Receipt Date: 20100318
  Transmission Date: 20100710
  Serious: Yes (Death)
  Sender: FDA-Public Use
  Company Number: PHHY2010JP17378

PATIENT
  Sex: Male
  Weight: 78 kg

DRUGS (13)
  1. DIOVAN [Suspect]
     Indication: HYPERTENSION
     Dosage: 80 MG, QD
     Route: 048
     Dates: start: 20080312
  2. DICHLOTRIDE [Concomitant]
     Indication: HYPERTENSION
     Route: 048
     Dates: start: 20080530, end: 20091026
  3. DOXAZOSIN MESYLATE [Concomitant]
     Indication: HYPERTENSION
     Route: 048
     Dates: start: 20080502, end: 20091026
  4. ADALAT CC [Concomitant]
     Indication: HYPERTENSION
     Dosage: 40 MG, UNK
     Route: 048
     Dates: start: 20060213
  5. ADALAT CC [Concomitant]
     Dosage: 80 MG, UNK
     Route: 048
     Dates: end: 20091026
  6. ITOROL [Concomitant]
     Route: 048
     Dates: start: 20060213, end: 20091026
  7. CHOLEBRINE [Concomitant]
     Dosage: 1000 MG, UNK
     Route: 048
     Dates: start: 20050601, end: 20091026
  8. LIPITOR [Concomitant]
     Route: 048
     Dates: start: 20051019, end: 20091026
  9. SELBEX [Concomitant]
     Route: 048
     Dates: start: 20060213, end: 20091026
  10. URSO 250 [Concomitant]
     Route: 048
     Dates: start: 20031027, end: 20091026
  11. BUFFERIN [Concomitant]
     Dosage: UNK
     Route: 048
     Dates: start: 20030630, end: 20091026
  12. WARFARIN SODIUM [Concomitant]
     Dosage: PRN
     Route: 048
     Dates: start: 20090126, end: 20091026
  13. PARAMIDIN [Concomitant]
     Route: 048
     Dates: start: 20090209, end: 20091026

REACTIONS (1)
  - DEATH [None]
